FAERS Safety Report 8457303-3 (Version None)
Quarter: 2012Q2

REPORT INFORMATION
  Report Type: 
  Country: None (occurrence: None)
  Receive Date: 20120621
  Receipt Date: 20120611
  Transmission Date: 20120825
  Serious: Yes (Hospitalization)
  Sender: FDA-Public Use
  Company Number: US-ELI_LILLY_AND_COMPANY-US201203008964

PATIENT
  Sex: Female
  Weight: 50.2 kg

DRUGS (1)
  1. ADCIRCA [Suspect]
     Dosage: 40 MG, QD
     Dates: start: 20111201

REACTIONS (1)
  - STENT PLACEMENT [None]
